FAERS Safety Report 10684665 (Version 1)
Quarter: 2014Q4

REPORT INFORMATION
  Report Type: Spontaneous
  Country: US (occurrence: US)
  Receive Date: 20141231
  Receipt Date: 20141231
  Transmission Date: 20150529
  Serious: No
  Sender: FDA-Public Use
  Company Number: US-SHIRE-US201409013

PATIENT
  Age: 12 Year
  Sex: Male
  Weight: 56.69 kg

DRUGS (5)
  1. PENTASA [Suspect]
     Active Substance: MESALAMINE
     Dosage: 1000 MG (TWO 500 MG), 2X/DAY:BID (IN THE MORNING AND AT NIGHT)
     Route: 048
     Dates: start: 20141204, end: 20141204
  2. PENTASA [Suspect]
     Active Substance: MESALAMINE
     Dosage: 1500 MG (THREE 500 MG), 2X/DAY:BID (IN THE MORNING AND AT NIGHT)
     Route: 048
     Dates: start: 20141205, end: 20141207
  3. PENTASA [Suspect]
     Active Substance: MESALAMINE
     Indication: CROHN^S DISEASE
     Dosage: ^1/2 OF A 500 MG CAPSULE^,, 1X/DAY:QD
     Route: 048
     Dates: start: 20141201, end: 20141201
  4. PENTASA [Suspect]
     Active Substance: MESALAMINE
     Dosage: 500 MG, 1X/DAY:QD
     Route: 048
     Dates: start: 20141202, end: 20141202
  5. PENTASA [Suspect]
     Active Substance: MESALAMINE
     Dosage: 500 MG, 2X/DAY:BID (ONE IN THE MORNING AND ONE AT NIGHT)
     Route: 048
     Dates: start: 20141203, end: 20141203

REACTIONS (8)
  - Urticaria [Recovered/Resolved]
  - Wrong technique in drug usage process [Recovered/Resolved]
  - Off label use [Recovered/Resolved]
  - Erythema [Recovered/Resolved]
  - Pruritus [Recovered/Resolved]
  - Rash [Recovered/Resolved]
  - Diarrhoea [Not Recovered/Not Resolved]
  - Incorrect dose administered [Recovered/Resolved]

NARRATIVE: CASE EVENT DATE: 20141201
